FAERS Safety Report 6528705-7 (Version None)
Quarter: 2009Q4

REPORT INFORMATION
  Report Type: 
  Country: None (occurrence: None)
  Receive Date: 20091224
  Receipt Date: 20091208
  Transmission Date: 20100525
  Serious: Yes (Hospitalization)
  Sender: FDA-Public Use
  Company Number: 2009SA009079

PATIENT
  Age: 74 Year
  Sex: Female

DRUGS (16)
  1. FLUDARABINE PHOSPHATE [Suspect]
     Indication: CHRONIC LYMPHOCYTIC LEUKAEMIA
     Dosage: 40 MILLIGRAM (S) ;DAILY; ORAL
     Route: 048
     Dates: start: 20081119, end: 20081121
  2. RITUXAN [Suspect]
     Indication: CHRONIC LYMPHOCYTIC LEUKAEMIA
     Dosage: 60 MILLIGRAM (S) ;UNKNOWN;INTRAVEOUS (NOT OTHERWISE SPECIFIED)
     Route: 042
     Dates: start: 20081117
  3. CYCLOPHOSPHAMIDE [Suspect]
     Indication: CHRONIC LYMPHOCYTIC LEUKAEMIA
     Dosage: 250 MILLIGRAM (S) ;DAILY; ORAL
     Route: 048
     Dates: start: 20081119
  4. ALLOPURINOL [Concomitant]
  5. SIMVASTATIN [Concomitant]
  6. SOMAC [Concomitant]
  7. VALTREX [Concomitant]
  8. BACTRIM DS [Concomitant]
  9. DEXAMETHASONE TAB [Concomitant]
  10. INTRAGAM [Concomitant]
  11. PREDNISOLONE [Concomitant]
  12. GLYCERYL TRINITRATE [Concomitant]
  13. PLATELETS [Concomitant]
  14. LASIX [Concomitant]
  15. SODIUM BICARBONATE [Concomitant]
  16. CLEXANE [Concomitant]

REACTIONS (3)
  - CONDITION AGGRAVATED [None]
  - CONTUSION [None]
  - THROMBOCYTOPENIA [None]
